FAERS Safety Report 9617618 (Version 3)
Quarter: 2013Q4

REPORT INFORMATION
  Report Type: Spontaneous
  Country: IL (occurrence: IL)
  Receive Date: 20131011
  Receipt Date: 20131224
  Transmission Date: 20140711
  Serious: Yes (Hospitalization, Other)
  Sender: FDA-Public Use
  Company Number: IL-UCBSA-099904

PATIENT
  Age: 15 Year
  Sex: Female

DRUGS (4)
  1. VIMPAT [Suspect]
     Indication: PARTIAL SEIZURES
     Route: 048
     Dates: start: 201304, end: 2013
  2. VIMPAT [Suspect]
     Indication: PARTIAL SEIZURES
     Dosage: THERAPY FOR THE LAST 1.5 YEARS
  3. TEGRETOL [Concomitant]
  4. FRISIUM [Concomitant]

REACTIONS (1)
  - Tachycardia [Recovering/Resolving]
